FAERS Safety Report 4691012-1 (Version None)
Quarter: 2005Q2

REPORT INFORMATION
  Report Type: 
  Country: None (occurrence: None)
  Receive Date: 20050615
  Receipt Date: 20050530
  Transmission Date: 20051028
  Serious: Yes (Other)
  Sender: FDA-Public Use
  Company Number: JP-JNJFOC-20050504889

PATIENT
  Age: 54 Year
  Sex: Female

DRUGS (4)
  1. ITRIZOLE [Suspect]
     Route: 049
  2. ITRIZOLE [Suspect]
     Route: 049
  3. ITRIZOLE [Suspect]
     Indication: ONYCHOMYCOSIS
     Route: 049
  4. TERBINAFINE HCL [Concomitant]
     Route: 061

REACTIONS (4)
  - ANAEMIA [None]
  - BRAIN NATRIURETIC PEPTIDE INCREASED [None]
  - HEPATIC FUNCTION ABNORMAL [None]
  - WHITE BLOOD CELL COUNT INCREASED [None]
